FAERS Safety Report 9462026 (Version 4)
Quarter: 2015Q2

REPORT INFORMATION
  Report Type: Report from Study
  Country: FR (occurrence: FR)
  Receive Date: 20130816
  Receipt Date: 20150420
  Transmission Date: 20150821
  Serious: Yes (Death, Life-Threatening, Hospitalization, Disabling)
  Sender: FDA-Public Use
  Company Number: FR-JNJFOC-20130806105

PATIENT
  Age: 63 Year
  Sex: Male

DRUGS (18)
  1. BORTEZOMIB [Suspect]
     Active Substance: BORTEZOMIB
     Indication: PLASMA CELL MYELOMA
     Route: 065
     Dates: start: 20120927, end: 20121005
  2. BORTEZOMIB [Suspect]
     Active Substance: BORTEZOMIB
     Indication: PLASMA CELL MYELOMA
     Route: 065
     Dates: start: 20120906, end: 20120926
  3. VANCOMYCINE [Concomitant]
     Active Substance: VANCOMYCIN
     Route: 065
     Dates: start: 20120810, end: 201208
  4. AREDIA [Concomitant]
     Active Substance: PAMIDRONATE DISODIUM
     Route: 065
  5. TIENAM [Concomitant]
     Active Substance: CILASTATIN SODIUM\IMIPENEM
     Route: 065
     Dates: start: 20120918, end: 20120927
  6. CARMUSTINE [Suspect]
     Active Substance: CARMUSTINE
     Indication: PLASMA CELL MYELOMA
     Route: 065
     Dates: start: 20120906, end: 20120926
  7. FORTUM [Concomitant]
     Active Substance: CEFTAZIDIME
     Route: 065
     Dates: start: 20120810, end: 201208
  8. TEVAGRASTIM [Concomitant]
     Active Substance: FILGRASTIM
     Route: 065
     Dates: start: 20121006, end: 20121010
  9. TEVAGRASTIM [Concomitant]
     Active Substance: FILGRASTIM
     Route: 065
  10. ROCEPHIN [Concomitant]
     Active Substance: CEFTRIAXONE SODIUM
     Route: 065
     Dates: start: 20121018, end: 20121022
  11. CARMUSTINE [Suspect]
     Active Substance: CARMUSTINE
     Indication: PLASMA CELL MYELOMA
     Route: 065
     Dates: start: 20120927, end: 20121005
  12. TEVAGRASTIM [Concomitant]
     Active Substance: FILGRASTIM
     Route: 065
     Dates: start: 20120916, end: 20120922
  13. FLAGYL [Concomitant]
     Active Substance: METRONIDAZOLE\METRONIDAZOLE HYDROCHLORIDE
     Route: 065
     Dates: start: 201209, end: 20120924
  14. OFLOCET [Concomitant]
     Active Substance: OFLOXACIN
     Route: 065
     Dates: start: 20120918, end: 20120927
  15. DOXORUBICIN HYDROCHLORIDE. [Suspect]
     Active Substance: DOXORUBICIN HYDROCHLORIDE
     Indication: PLASMA CELL MYELOMA
     Route: 042
     Dates: start: 20120927, end: 20121005
  16. DOXORUBICIN HYDROCHLORIDE. [Suspect]
     Active Substance: DOXORUBICIN HYDROCHLORIDE
     Indication: PLASMA CELL MYELOMA
     Route: 042
     Dates: start: 20120906, end: 20120926
  17. AREDIA [Concomitant]
     Active Substance: PAMIDRONATE DISODIUM
     Route: 065
     Dates: start: 20120601, end: 20120607
  18. VANCOMYCINE [Concomitant]
     Active Substance: VANCOMYCIN
     Route: 065
     Dates: start: 20120924, end: 20120930

REACTIONS (10)
  - General physical condition abnormal [Fatal]
  - Citrobacter infection [Unknown]
  - Somnolence [Unknown]
  - General physical health deterioration [Fatal]
  - Pulmonary sepsis [Unknown]
  - Pancytopenia [Recovered/Resolved]
  - Asthenia [Unknown]
  - Melaena [Unknown]
  - Confusional state [Unknown]
  - Hyperthermia [Unknown]

NARRATIVE: CASE EVENT DATE: 20120914
